FAERS Safety Report 6554714-8 (Version None)
Quarter: 2010Q1

REPORT INFORMATION
  Report Type: 
  Country: None (occurrence: None)
  Receive Date: 20100127
  Receipt Date: 20100119
  Transmission Date: 20100710
  Serious: Yes (Other)
  Sender: FDA-Public Use
  Company Number: US-JNJFOC-20091007063

PATIENT
  Sex: Female

DRUGS (11)
  1. LEVAQUIN [Suspect]
     Indication: DRUG USE FOR UNKNOWN INDICATION
     Route: 065
  2. LOMOTIL [Concomitant]
     Route: 048
  3. PROGESTERONE [Concomitant]
     Route: 065
  4. FLEXERIL [Concomitant]
     Route: 048
  5. MACROBID [Concomitant]
     Route: 065
  6. LEVOTHROID [Concomitant]
     Route: 065
  7. WELLBUTRIN SR [Concomitant]
     Route: 065
  8. OXYBUTYNIN CHLORIDE [Concomitant]
     Route: 065
  9. NORCO [Concomitant]
     Route: 065
  10. TIZANIDINE HCL [Concomitant]
     Route: 065
  11. AZITHROMYCIN [Concomitant]
     Route: 065

REACTIONS (5)
  - CERVICAL SPINAL STENOSIS [None]
  - INSOMNIA [None]
  - INTERVERTEBRAL DISC DEGENERATION [None]
  - JOINT INJURY [None]
  - MUSCULOSKELETAL PAIN [None]
